FAERS Safety Report 21485400 (Version 3)
Quarter: 2024Q4

REPORT INFORMATION
  Report Type: Spontaneous
  Country: US (occurrence: US)
  Receive Date: 20221020
  Receipt Date: 20241122
  Transmission Date: 20250114
  Serious: Yes (Other)
  Sender: PFIZER
  Company Number: US-PFIZER INC-PV202200085399

PATIENT
  Age: 71 Year
  Sex: Female

DRUGS (4)
  1. IBRANCE [Suspect]
     Active Substance: PALBOCICLIB
     Indication: Breast cancer female
     Dosage: UNK
     Dates: start: 20220701, end: 202207
  2. IBRANCE [Suspect]
     Active Substance: PALBOCICLIB
     Dosage: 100 MG
     Dates: start: 20220729, end: 2022
  3. IBRANCE [Suspect]
     Active Substance: PALBOCICLIB
     Dosage: 75 MG, CYCLIC (1X/DAY FOR 3 WEEKS AND 1 WEEK OFF)
     Route: 048
     Dates: start: 2022
  4. IBRANCE [Suspect]
     Active Substance: PALBOCICLIB
     Dosage: START THE 10TH OF EACH MONTH, 21 DAYS IN A ROW THEN DISCONTINUE UNTIL THE 10TH OF THE NEXT MONTH
     Route: 048

REACTIONS (4)
  - Neutropenia [Unknown]
  - Stomatitis [Recovering/Resolving]
  - Dyspnoea [Recovering/Resolving]
  - Cough [Recovering/Resolving]

NARRATIVE: CASE EVENT DATE: 20220101
